FAERS Safety Report 5474004-4 (Version None)
Quarter: 2007Q3

REPORT INFORMATION
  Report Type: 
  Country: None (occurrence: None)
  Receive Date: 20070928
  Receipt Date: 20070928
  Transmission Date: 20080115
  Serious: No
  Sender: FDA-Public Use
  Company Number: None

PATIENT
  Sex: Female
  Weight: 53.5244 kg

DRUGS (2)
  1. MAPROTILINE [Suspect]
     Indication: IRRITABLE BOWEL SYNDROME
     Dosage: 50MGM DAILY ORAL
     Route: 048
     Dates: start: 19800101
  2. MAPROTILINE [Suspect]
     Indication: IRRITABLE BOWEL SYNDROME
     Dosage: 50MGM DAILY ORAL
     Route: 048
     Dates: start: 20050101

REACTIONS (2)
  - DRUG INEFFECTIVE [None]
  - THERAPEUTIC RESPONSE UNEXPECTED WITH DRUG SUBSTITUTION [None]
